FAERS Safety Report 5737037-6 (Version None)
Quarter: 2008Q2

REPORT INFORMATION
  Report Type: 
  Country: None (occurrence: None)
  Receive Date: 20080512
  Receipt Date: 20080512
  Transmission Date: 20081010
  Serious: Yes (Disabling, Other)
  Sender: FDA-Public Use
  Company Number: None

PATIENT
  Sex: Female
  Weight: 58.0604 kg

DRUGS (6)
  1. ACTONEL [Suspect]
     Indication: COLITIS ULCERATIVE
     Dosage: 5 MG. ONE DAILY
     Dates: start: 20040801, end: 20080412
  2. ACTONEL [Suspect]
     Indication: OSTEOPOROSIS PROPHYLAXIS
     Dosage: 5 MG. ONE DAILY
     Dates: start: 20040801, end: 20080412
  3. MORPHINE [Concomitant]
  4. CLINORIL [Concomitant]
  5. NITROGLYCERIN [Concomitant]
  6. PENTASA [Concomitant]

REACTIONS (8)
  - ANAEMIA [None]
  - BLOOD PRESSURE DECREASED [None]
  - DEHYDRATION [None]
  - DIARRHOEA [None]
  - FREQUENT BOWEL MOVEMENTS [None]
  - MUSCLE SPASMS [None]
  - RECTAL HAEMORRHAGE [None]
  - WEIGHT DECREASED [None]
